FAERS Safety Report 4481205-0 (Version None)
Quarter: 2004Q4

REPORT INFORMATION
  Report Type: 
  Country: None (occurrence: None)
  Receive Date: 20041021
  Receipt Date: 20041018
  Transmission Date: 20050328
  Serious: Yes (Hospitalization)
  Sender: FDA-Public Use
  Company Number: US-JNJFOC-20040708271

PATIENT
  Age: 60 Year
  Sex: Female
  Weight: 84.82 kg

DRUGS (3)
  1. DOXIL [Suspect]
     Indication: MULTIPLE MYELOMA
     Route: 042
  2. VINCRISTINE [Suspect]
     Indication: MULTIPLE MYELOMA
     Route: 042
  3. DEXAMETHASONE [Concomitant]
     Indication: MULTIPLE MYELOMA

REACTIONS (2)
  - HYPOCALCAEMIA [None]
  - TETANY [None]
